FAERS Safety Report 8224453-6 (Version None)
Quarter: 2012Q1

REPORT INFORMATION
  Report Type: 
  Country: None (occurrence: None)
  Receive Date: 20120321
  Receipt Date: 20120319
  Transmission Date: 20120608
  Serious: Yes (Congenital Anomaly, Other)
  Sender: FDA-Public Use
  Company Number: DE-BAYER-201037513GPV

PATIENT
  Age: 1 Year
  Sex: Female

DRUGS (2)
  1. BETASERON [Suspect]
     Route: 064
     Dates: start: 20090501, end: 20090620
  2. BETASERON [Suspect]
     Indication: MULTIPLE SCLEROSIS
     Route: 064
     Dates: start: 20090501, end: 20090620

REACTIONS (4)
  - ATRIAL SEPTAL DEFECT [None]
  - PREMATURE BABY [None]
  - ECHOCARDIOGRAM ABNORMAL [None]
  - HIP DYSPLASIA [None]
